FAERS Safety Report 4911061-5 (Version None)
Quarter: 2006Q1

REPORT INFORMATION
  Report Type: 
  Country: None (occurrence: None)
  Receive Date: 20060209
  Receipt Date: 20060120
  Transmission Date: 20060701
  Serious: Yes (Other)
  Sender: FDA-Public Use
  Company Number: CA200601004457

PATIENT
  Sex: Female

DRUGS (2)
  1. HUMAN INSULIN (RDNA ORIGIN) (HUMAN INSULIN)(HUMAN INSULIN (RDNA ORIGIN [Suspect]
  2. ILETIN [Suspect]

REACTIONS (2)
  - CONVULSION [None]
  - SUICIDAL IDEATION [None]
